FAERS Safety Report 4420032-7 (Version None)
Quarter: 2004Q3

REPORT INFORMATION
  Report Type: 
  Country: None (occurrence: None)
  Receive Date: 20040804
  Receipt Date: 20040722
  Transmission Date: 20050211
  Serious: Yes (Congenital Anomaly, Other)
  Sender: FDA-Public Use
  Company Number: 2004050177

PATIENT
  Sex: 0

DRUGS (1)
  1. ZOLOFT [Suspect]
     Indication: ILL-DEFINED DISORDER
     Route: 064

REACTIONS (2)
  - CONGENITAL ABSENCE OF CRANIAL VAULT [None]
  - MATERNAL DRUGS AFFECTING FOETUS [None]
